FAERS Safety Report 5217694-3 (Version None)
Quarter: 2007Q1

REPORT INFORMATION
  Report Type: 
  Country: None (occurrence: None)
  Receive Date: 20070124
  Receipt Date: 20070111
  Transmission Date: 20070707
  Serious: Yes (Hospitalization, Other)
  Sender: FDA-Public Use
  Company Number: DE-ELI_LILLY_AND_COMPANY-DE200607005213

PATIENT
  Age: 30 Year
  Sex: Female

DRUGS (6)
  1. CYMBALTA [Suspect]
     Indication: DEPRESSION
     Dosage: 60 MG, DAILY (1/D)
     Route: 048
     Dates: start: 20051001
  2. ERGENYL CHRONO [Concomitant]
     Route: 048
  3. DICLOFENAC SODIUM [Concomitant]
  4. VALORON [Concomitant]
  5. NOVALGIN /SCH/ [Concomitant]
  6. IBUPROFEN [Concomitant]

REACTIONS (4)
  - CARTILAGE INJURY [None]
  - INADEQUATE ANALGESIA [None]
  - OSTEOARTHRITIS [None]
  - RASH [None]
